FAERS Safety Report 5484536-0 (Version None)
Quarter: 2007Q4

REPORT INFORMATION
  Report Type: 
  Country: None (occurrence: None)
  Receive Date: 20071012
  Receipt Date: 20071003
  Transmission Date: 20080405
  Serious: Yes (Hospitalization, Other)
  Sender: FDA-Public Use
  Company Number: AT-PFIZER INC-2007076595

PATIENT
  Sex: Female
  Weight: 61.5 kg

DRUGS (2)
  1. DEPOCON [Suspect]
     Indication: CONTRACEPTION
     Route: 030
     Dates: start: 20040314, end: 20040314
  2. DEPOCON [Suspect]
     Route: 030
     Dates: start: 20040829, end: 20040829

REACTIONS (4)
  - ANOGENITAL WARTS [None]
  - DRUG INEFFECTIVE [None]
  - UNINTENDED PREGNANCY [None]
  - UTERINE CONTRACTIONS DURING PREGNANCY [None]
